FAERS Safety Report 4714056-X (Version None)
Quarter: 2005Q3

REPORT INFORMATION
  Report Type: 
  Country: None (occurrence: None)
  Receive Date: 20050714
  Receipt Date: 20050705
  Transmission Date: 20060218
  Serious: Yes (Other)
  Sender: FDA-Public Use
  Company Number: PHNR2005AU01079

PATIENT
  Sex: Female

DRUGS (6)
  1. CAFERGOT [Suspect]
     Indication: MIGRAINE
     Dosage: OCASSIONALLY, DURING THE DAY
  2. PARADEX [Concomitant]
     Indication: PAIN
  3. MOTILIUM [Concomitant]
     Indication: GASTROINTESTINAL DISORDER
  4. VALIUM [Concomitant]
     Dosage: EVERYNOW AND THEN
  5. ANTIDEPRESSANTS [Concomitant]
  6. CAFERGOT [Suspect]
     Dosage: 1/2 SUPPOSITORY, EACH NIGHT

REACTIONS (4)
  - DRUG DEPENDENCE [None]
  - DRUG WITHDRAWAL HEADACHE [None]
  - PERIPHERAL COLDNESS [None]
  - VASOCONSTRICTION [None]
